FAERS Safety Report 24361956 (Version 1)
Quarter: 2024Q3

REPORT INFORMATION
  Report Type: Spontaneous
  Country: US (occurrence: None)
  Receive Date: 20240925
  Receipt Date: 20240925
  Transmission Date: 20241017
  Serious: Yes (Hospitalization)
  Sender: Public
  Company Number: None

PATIENT
  Age: 70 Year
  Sex: Female

DRUGS (11)
  1. AVONEX [Suspect]
     Active Substance: INTERFERON BETA-1A
     Indication: Multiple sclerosis
     Dosage: FREQ: INJECT 30 MCG IN THE MUSCLE ONCE A WEEK
     Route: 030
     Dates: start: 20220617
  2. AMLODIPINE [Concomitant]
     Active Substance: AMLODIPINE BESYLATE
  3. CAL-MAG-ZINC TAB -D [Concomitant]
  4. CENTRUM SILV TAB 50+WOMEN [Concomitant]
  5. ESCITALOPRAM [Concomitant]
     Active Substance: ESCITALOPRAM OXALATE
  6. ESTER-C [Concomitant]
  7. FLOMAX [Concomitant]
     Active Substance: TAMSULOSIN HYDROCHLORIDE
  8. LEG CRAMPS [Concomitant]
     Active Substance: ACONITUM NAPELLUS\ARNICA MONTANA\LEDUM PALUSTRE TWIG\MAGNESIUM PHOSPHATE, DIBASIC TRIHYDRATE\TOXICOD
  9. LOSARTAN POTASSIUM [Concomitant]
     Active Substance: LOSARTAN POTASSIUM
  10. PREDNISONE [Concomitant]
     Active Substance: PREDNISONE
  11. ROSUVASTATIN [Suspect]
     Active Substance: ROSUVASTATIN\ROSUVASTATIN CALCIUM

REACTIONS (2)
  - Nephrolithiasis [None]
  - Intentional dose omission [None]

NARRATIVE: CASE EVENT DATE: 20240902
